FAERS Safety Report 24562510 (Version 2)
Quarter: 2024Q4

REPORT INFORMATION
  Report Type: Spontaneous
  Country: FR (occurrence: FR)
  Receive Date: 20241029
  Receipt Date: 20241129
  Transmission Date: 20250115
  Serious: Yes (Hospitalization, Other)
  Sender: AUROBINDO
  Company Number: FR-AFSSAPS-PP2024001117

PATIENT
  Age: 69 Year
  Sex: Female
  Weight: 88 kg

DRUGS (9)
  1. OMEPRAZOLE [Suspect]
     Active Substance: OMEPRAZOLE
     Indication: Ulcer
     Dosage: UNK
     Route: 048
     Dates: start: 202407, end: 202407
  2. OMEPRAZOLE [Suspect]
     Active Substance: OMEPRAZOLE
     Dosage: UNK
     Route: 048
     Dates: start: 202407, end: 202407
  3. OMEPRAZOLE [Suspect]
     Active Substance: OMEPRAZOLE
     Dosage: UNK
     Route: 048
     Dates: start: 202407, end: 202407
  4. METAMIZOLE SODIUM [Suspect]
     Active Substance: METAMIZOLE SODIUM
     Indication: Product used for unknown indication
     Dosage: UNK
     Route: 048
     Dates: start: 202407, end: 202407
  5. METAMIZOLE SODIUM [Suspect]
     Active Substance: METAMIZOLE SODIUM
     Dosage: UNK
     Route: 048
     Dates: start: 202407, end: 202407
  6. ALBENDAZOLE [Suspect]
     Active Substance: ALBENDAZOLE
     Indication: Product used for unknown indication
     Dosage: UNK
     Route: 042
     Dates: start: 202407, end: 202407
  7. ARTEMETHER\LUMEFANTRINE [Suspect]
     Active Substance: ARTEMETHER\LUMEFANTRINE
     Indication: Product used for unknown indication
     Dosage: UNK
     Route: 048
     Dates: start: 202407, end: 202407
  8. ACETAMINOPHEN [Concomitant]
     Active Substance: ACETAMINOPHEN
     Indication: Product used for unknown indication
     Dosage: UNK
     Route: 065
  9. EXFORGE [Concomitant]
     Active Substance: AMLODIPINE BESYLATE\VALSARTAN
     Indication: Product used for unknown indication
     Dosage: UNK
     Route: 065

REACTIONS (1)
  - Hepatic cytolysis [Recovering/Resolving]

NARRATIVE: CASE EVENT DATE: 20240715
